FAERS Safety Report 14728172 (Version 1)
Quarter: 2018Q2

REPORT INFORMATION
  Report Type: Spontaneous
  Country: US (occurrence: US)
  Receive Date: 20180402
  Receipt Date: 20180402
  Transmission Date: 20180711
  Serious: Yes (Hospitalization, Other)
  Sender: FDA-Public Use
  Company Number: None

PATIENT
  Age: 62 Year
  Sex: Female

DRUGS (30)
  1. SYNTHROID [Concomitant]
     Active Substance: LEVOTHYROXINE SODIUM
  2. ATORVASTATIN [Concomitant]
     Active Substance: ATORVASTATIN
  3. LEVOFLOXACIN. [Concomitant]
     Active Substance: LEVOFLOXACIN
  4. METFORMIN [Concomitant]
     Active Substance: METFORMIN HYDROCHLORIDE
  5. PROCHLORPER [Concomitant]
  6. IRBESARTAN. [Concomitant]
     Active Substance: IRBESARTAN
  7. HCTZ [Concomitant]
     Active Substance: HYDROCHLOROTHIAZIDE
  8. CHLORHEX GLU [Concomitant]
  9. IVERMECTIN. [Concomitant]
     Active Substance: IVERMECTIN
  10. PERMETRIN CREAM 5% [Concomitant]
  11. CYCLOBENZAPRINE. [Concomitant]
     Active Substance: CYCLOBENZAPRINE
  12. FUROSEMIDE. [Concomitant]
     Active Substance: FUROSEMIDE
  13. OSELTAMIVIR [Concomitant]
     Active Substance: OSELTAMIVIR
  14. ROSUVASTATIN. [Concomitant]
     Active Substance: ROSUVASTATIN
  15. PROAIR HFA [Concomitant]
     Active Substance: ALBUTEROL SULFATE
  16. VENTOLIN HFA [Concomitant]
     Active Substance: ALBUTEROL SULFATE
  17. LETROZOLE. [Concomitant]
     Active Substance: LETROZOLE
  18. IBRANCE [Suspect]
     Active Substance: PALBOCICLIB
     Indication: BREAST CANCER
     Route: 048
     Dates: start: 20180206
  19. ONDANSETRON [Concomitant]
     Active Substance: ONDANSETRON
  20. AMOXICILLIN. [Concomitant]
     Active Substance: AMOXICILLIN
  21. PREDNISONE. [Suspect]
     Active Substance: PREDNISONE
  22. MELOXICAM. [Concomitant]
     Active Substance: MELOXICAM
  23. ONE TOUCH MIS LANCETS [Concomitant]
  24. METOCLOPRAMIDE. [Concomitant]
     Active Substance: METOCLOPRAMIDE
  25. AMLODIPINE [Concomitant]
     Active Substance: AMLODIPINE BESYLATE
  26. ONE TOUCH TEST AND KIT ULTRA 2 [Concomitant]
  27. POT CHL [Concomitant]
  28. AZITHROMYCIN ANHYDROUS. [Concomitant]
     Active Substance: AZITHROMYCIN ANHYDROUS
  29. FREESTYLE MIS. LANCETS [Concomitant]
  30. BENZONATATE. [Concomitant]
     Active Substance: BENZONATATE

REACTIONS (1)
  - Influenza [None]

NARRATIVE: CASE EVENT DATE: 20180402
